FAERS Safety Report 11628136 (Version 1)
Quarter: 2015Q4

REPORT INFORMATION
  Report Type: Spontaneous
  Country: US (occurrence: None)
  Receive Date: 20151009
  Receipt Date: 20151009
  Transmission Date: 20160304
  Serious: No
  Sender: FDA-Public Use
  Company Number: US-ZYDUS-009144

PATIENT
  Age: 59 Year
  Sex: Female

DRUGS (2)
  1. MORPHINE [Suspect]
     Active Substance: MORPHINE
     Indication: PAIN MANAGEMENT
     Dosage: 5MG/HOUR
     Route: 042
  2. MORPHINE [Suspect]
     Active Substance: MORPHINE
     Indication: PAIN MANAGEMENT
     Dosage: 1MG/HOUR
     Route: 042

REACTIONS (10)
  - Skin ulcer [None]
  - Agitation [None]
  - Respiratory rate increased [None]
  - Pain [None]
  - Neurotoxicity [None]
  - Unresponsive to stimuli [None]
  - Confusional state [None]
  - Myoclonus [None]
  - Heart rate increased [None]
  - Blood pressure decreased [None]
